FAERS Safety Report 6358982-7 (Version None)
Quarter: 2009Q3

REPORT INFORMATION
  Report Type: 
  Country: None (occurrence: None)
  Receive Date: 20090914
  Receipt Date: 20090901
  Transmission Date: 20100115
  Serious: Yes (Death)
  Sender: FDA-Public Use
  Company Number: 2009-03008

PATIENT
  Age: 41 Year
  Sex: Female
  Weight: 70 kg

DRUGS (5)
  1. VELCADE [Suspect]
     Indication: MULTIPLE MYELOMA
     Dosage: 2.4 MG, INTRAVENOUS
     Route: 042
     Dates: start: 20090626, end: 20090706
  2. LINEZOLID [Concomitant]
  3. PHOSPHATE-SANDOZ (SODIUM BICARBONATE, POTASSIUM BICARBONATE, SODIUM PH [Concomitant]
  4. FUROSCAND (FUROSEMIDE) [Concomitant]
  5. AMIODARONE HCL [Concomitant]

REACTIONS (5)
  - DISEASE PROGRESSION [None]
  - DRUG INEFFECTIVE [None]
  - MULTIPLE MYELOMA [None]
  - PLASMACYTOMA [None]
  - SPINAL CORD COMPRESSION [None]
